FAERS Safety Report 6982433-2 (Version None)
Quarter: 2010Q3

REPORT INFORMATION
  Report Type: 
  Country: None (occurrence: None)
  Receive Date: 20100914
  Receipt Date: 20100107
  Transmission Date: 20110219
  Serious: Yes (Hospitalization)
  Sender: FDA-Public Use
  Company Number: US-PFIZER INC-2010003268

PATIENT
  Sex: Female
  Weight: 57.596 kg

DRUGS (1)
  1. LYRICA [Suspect]
     Indication: FIBROMYALGIA
     Dosage: 50 MG, 2X/DAY
     Route: 048
     Dates: start: 20090801, end: 20091101

REACTIONS (3)
  - ALOPECIA [None]
  - DEPRESSION [None]
  - NERVOUSNESS [None]
